FAERS Safety Report 4834864-4 (Version None)
Quarter: 2005Q4

REPORT INFORMATION
  Report Type: 
  Country: None (occurrence: None)
  Receive Date: 20051115
  Receipt Date: 20051103
  Transmission Date: 20060501
  Serious: Yes (Other)
  Sender: FDA-Public Use
  Company Number: 2005150869

PATIENT
  Age: 51 Year
  Sex: Female
  Weight: 54.4316 kg

DRUGS (11)
  1. BENADRYL [Suspect]
     Indication: INSOMNIA
     Dosage: 25-50 MG ONCE NIGHTLY, ORAL
     Route: 048
  2. GABAPENTIN [Concomitant]
  3. WHEAT-GERM OIL (WHEAT-GERM OIL) [Concomitant]
  4. OTHER NUTRIENTS (OTHER NUTRIENTS) [Concomitant]
  5. NAPROXEN SODIUM [Concomitant]
  6. OTHER NUTRIENTS (OTHER NUTRIENTS) [Concomitant]
  7. ACETIC ACID (ACETIC ACID) [Concomitant]
  8. LINSEED OIL (LINSEED OIL) [Concomitant]
  9. DIHYDROCODEINE BITARTRATE INJ [Concomitant]
  10. CALCIUM W/MAGNESIUM (CALCIUM, MAGNESIUM) [Concomitant]
  11. METHOCARBAMOL [Concomitant]

REACTIONS (7)
  - ALLERGY TO PLANTS [None]
  - DRUG DEPENDENCE [None]
  - FEELING ABNORMAL [None]
  - FOOD ALLERGY [None]
  - IRRITABILITY [None]
  - PRURITUS [None]
  - SOMNOLENCE [None]
